FAERS Safety Report 19679865 (Version 2)
Quarter: 2021Q3

REPORT INFORMATION
  Report Type: Report from Study
  Country: US (occurrence: US)
  Receive Date: 20210809
  Receipt Date: 20210825
  Transmission Date: 20211014
  Serious: Yes (Death, Hospitalization)
  Sender: FDA-Public Use
  Company Number: US-ASTRAZENECA-2021A671137

PATIENT
  Sex: Male

DRUGS (2)
  1. INSULIN [Concomitant]
     Active Substance: INSULIN NOS
     Route: 065
  2. TAGRISSO [Suspect]
     Active Substance: OSIMERTINIB
     Indication: LUNG NEOPLASM MALIGNANT
     Route: 048

REACTIONS (6)
  - Blister [Not Recovered/Not Resolved]
  - Peripheral swelling [Not Recovered/Not Resolved]
  - Asthenia [Not Recovered/Not Resolved]
  - Lung adenocarcinoma [Fatal]
  - Diabetes mellitus inadequate control [Fatal]
  - Blood glucose decreased [Not Recovered/Not Resolved]
